FAERS Safety Report 10022045 (Version 1)
Quarter: 2013Q4

REPORT INFORMATION
  Report Type: Spontaneous
  Country: GT (occurrence: None)
  Receive Date: 20131211
  Receipt Date: 20131211
  Transmission Date: 20140711
  Serious: Yes (Hospitalization)
  Sender: FDA-Public Use
  Company Number: CERZ-1003129

PATIENT
  Age: 22 Year
  Sex: Female
  Weight: 48.6 kg

DRUGS (1)
  1. CEREZYME [Suspect]
     Indication: GAUCHER^S DISEASE
     Dosage: 1.2 UNIT (S) /KILOGRAM BODYWEIGHT; EVERY OTHE WEEK; INTRAVENOUS (NOT OTHERWISE SPECIFIED)?
     Route: 042
     Dates: start: 200701

REACTIONS (5)
  - Maternal exposure during pregnancy [None]
  - Caesarean section [None]
  - Anaemia of pregnancy [None]
  - Thrombocytopenia [None]
  - Twin pregnancy [None]
